FAERS Safety Report 5751931-1 (Version None)
Quarter: 2008Q2

REPORT INFORMATION
  Report Type: 
  Country: None (occurrence: None)
  Receive Date: 20080527
  Receipt Date: 20080512
  Transmission Date: 20081010
  Serious: Yes (Other)
  Sender: FDA-Public Use
  Company Number: FEI2008-0819

PATIENT
  Age: 33 Year
  Sex: Female
  Weight: 56.246 kg

DRUGS (2)
  1. PARAGARD T 380A [Suspect]
     Indication: CONTRACEPTION
     Dosage: INTRA-UTERINE
     Route: 015
     Dates: start: 20080418, end: 20080421
  2. PRENATAL VITAMINS (PRENATAL VITAMINS /01549301/) [Concomitant]

REACTIONS (5)
  - ANXIETY [None]
  - DRUG HYPERSENSITIVITY [None]
  - DYSPHAGIA [None]
  - MUSCLE SPASMS [None]
  - SENSATION OF FOREIGN BODY [None]
